FAERS Safety Report 9683953 (Version 2)
Quarter: 2014Q1

REPORT INFORMATION
  Report Type: Spontaneous
  Country: US (occurrence: US)
  Receive Date: 20131112
  Receipt Date: 20140122
  Transmission Date: 20141002
  Serious: Yes (Other)
  Sender: FDA-Public Use
  Company Number: US-PFIZER INC-2013320831

PATIENT
  Age: 36 Year
  Sex: Female
  Weight: 86.17 kg

DRUGS (3)
  1. LYRICA [Suspect]
     Indication: FIBROMYALGIA
     Dosage: 200 MG, 2X/DAY
     Route: 048
     Dates: start: 2008
  2. LYRICA [Suspect]
     Indication: NEURALGIA
  3. LYRICA [Suspect]
     Indication: CONNECTIVE TISSUE DISORDER

REACTIONS (6)
  - Off label use [Unknown]
  - Abasia [Unknown]
  - Spinal disorder [Unknown]
  - Muscle twitching [Unknown]
  - Pain in extremity [Unknown]
  - Malaise [Unknown]
